FAERS Safety Report 24319657 (Version 2)
Quarter: 2024Q4

REPORT INFORMATION
  Report Type: Spontaneous
  Country: US (occurrence: US)
  Receive Date: 20240914
  Receipt Date: 20241003
  Transmission Date: 20250115
  Serious: No
  Sender: ALEXION PHARMACEUTICALS
  Company Number: 2024A209345

PATIENT
  Age: 74 Year

DRUGS (1)
  1. BYDUREON BCISE [Suspect]
     Active Substance: EXENATIDE
     Indication: Product used for unknown indication
     Dosage: 2 MILLIGRAM, QW

REACTIONS (7)
  - Device leakage [Unknown]
  - Wrong technique in device usage process [Unknown]
  - Incorrect dose administered by device [Unknown]
  - Drug dose omission by device [Unknown]
  - Overdose [Unknown]
  - Device use issue [Unknown]
  - Injection site pain [Unknown]
